FAERS Safety Report 21850787 (Version 1)
Quarter: 2023Q1

REPORT INFORMATION
  Report Type: Spontaneous
  Country: US (occurrence: US)
  Receive Date: 20230111
  Receipt Date: 20230111
  Transmission Date: 20230417
  Serious: No
  Sender: FDA-Public Use
  Company Number: US-INCYTE CORPORATION-2023IN000075

PATIENT

DRUGS (1)
  1. JAKAFI [Suspect]
     Active Substance: RUXOLITINIB
     Indication: Myelofibrosis
     Dosage: TAKE 1 TABLET (5MG) EVERY MORNING. ALSO TAKE 10MG TABLET IN THE EVENING FOR TOTAL OF 15MG TOTAL
     Route: 048

REACTIONS (1)
  - Alopecia [Unknown]
